FAERS Safety Report 8100770-5 (Version None)
Quarter: 2012Q1

REPORT INFORMATION
  Report Type: 
  Country: None (occurrence: None)
  Receive Date: 20120129
  Receipt Date: 20110928
  Transmission Date: 20120608
  Serious: No
  Sender: FDA-Public Use
  Company Number: US-ABBOTT-11P-163-0859022-00

PATIENT
  Age: 39 Year
  Sex: Female

DRUGS (7)
  1. OXAPROZIN [Concomitant]
     Indication: PAIN
     Route: 048
  2. LYRICA [Concomitant]
     Indication: FIBROMYALGIA
     Route: 048
  3. UNKNOWN PAIN BLOCKER [Concomitant]
     Indication: PRODUCT USED FOR UNKNOWN INDICATION
  4. NEXIUM [Concomitant]
     Indication: INTERVERTEBRAL DISC DISORDER
     Route: 048
  5. HUMIRA [Suspect]
     Indication: PSORIASIS
     Dates: start: 20110301
  6. VITAMIN D [Concomitant]
     Indication: VITAMIN D DEFICIENCY
  7. TRAZODONE HCL [Concomitant]
     Indication: PAIN
     Dosage: AT BEDTIME
     Route: 048

REACTIONS (3)
  - SKIN EXFOLIATION [None]
  - INJECTION SITE PAIN [None]
  - STRESS [None]
